FAERS Safety Report 5130133-6 (Version None)
Quarter: 2006Q4

REPORT INFORMATION
  Report Type: 
  Country: None (occurrence: None)
  Receive Date: 20061013
  Receipt Date: 20060815
  Transmission Date: 20070319
  Serious: Yes (Death, Other)
  Sender: FDA-Public Use
  Company Number: US200610000672

PATIENT
  Sex: 0
  Weight: 1.2 kg

DRUGS (5)
  1. ZYPREXA [Suspect]
     Dosage: 5 MG, DAILY (1/D), TRANSPLACENTAL
     Route: 064
     Dates: end: 20050704
  2. CELEXA [Concomitant]
  3. ABILIFY [Concomitant]
  4. WELLBUTRIN [Concomitant]
  5. TRAZODONE HCL [Concomitant]

REACTIONS (3)
  - DRUG EXPOSURE BEFORE PREGNANCY [None]
  - DRUG EXPOSURE DURING PREGNANCY [None]
  - SMALL FOR DATES BABY [None]
